FAERS Safety Report 15578103 (Version 2)
Quarter: 2025Q4

REPORT INFORMATION
  Report Type: Spontaneous
  Country: US (occurrence: US)
  Receive Date: 20181102
  Receipt Date: 20251112
  Transmission Date: 20260117
  Serious: Yes (Hospitalization, Other)
  Sender: AUROBINDO
  Company Number: US-AUROBINDO-AUR-APL-2018-053358

PATIENT
  Age: 46 Year
  Sex: Female

DRUGS (1)
  1. FLUCONAZOLE [Suspect]
     Active Substance: FLUCONAZOLE
     Indication: Cryptococcosis
     Dosage: UNK
     Route: 065

REACTIONS (8)
  - Body temperature decreased [Unknown]
  - Angina pectoris [Recovered/Resolved]
  - Troponin increased [Recovered/Resolved]
  - Back pain [Recovered/Resolved]
  - Thrombocytopenia [Recovering/Resolving]
  - Jarisch-Herxheimer reaction [Recovered/Resolved]
  - Hepatic enzyme increased [Recovered/Resolved]
  - Hypotension [Recovered/Resolved]
